FAERS Safety Report 10066537 (Version 1)
Quarter: 2014Q2

REPORT INFORMATION
  Report Type: Spontaneous
  Country: US (occurrence: None)
  Receive Date: 20140404
  Receipt Date: 20140404
  Transmission Date: 20141212
  Serious: Yes (Life-Threatening, Other)
  Sender: FDA-Public Use
  Company Number: 54973 AE # 1529

PATIENT
  Age: 8 Year
  Sex: Male

DRUGS (1)
  1. HYLAND^S COLD ^N COUGH NIGHTTIME LIQUID [Suspect]
     Indication: NASOPHARYNGITIS
     Dosage: 1 DOSE X 2 NIGHTS

REACTIONS (1)
  - Convulsion [None]
